FAERS Safety Report 10195408 (Version 1)
Quarter: 2014Q2

REPORT INFORMATION
  Report Type: Report from Study
  Country: FR (occurrence: FR)
  Receive Date: 20140526
  Receipt Date: 20140526
  Transmission Date: 20141212
  Serious: Yes (Other)
  Sender: FDA-Public Use
  Company Number: PHHY2014FR062426

PATIENT
  Sex: Female

DRUGS (8)
  1. EXTAVIA [Suspect]
     Indication: MULTIPLE SCLEROSIS
     Dosage: 01 ML, QOD
  2. NEURONTIN [Concomitant]
     Dosage: 600 MG, TID
  3. MOTILIN [Concomitant]
     Indication: DIARRHOEA
     Dosage: UNK UKN, PRN
  4. RIVOTRIL [Concomitant]
     Dosage: 13 GTT, QD IN THE EVENING
  5. CERIS [Concomitant]
     Dosage: 2 DF, DAILY
  6. PRAXINOR [Concomitant]
     Dosage: 2 DF, DAILY
  7. DOLIPRANE [Concomitant]
     Indication: HEADACHE
     Dosage: UNK UKN, PRN
  8. LEVOTHYROX [Concomitant]
     Dosage: 1 DF, QD (55)

REACTIONS (6)
  - Type 2 diabetes mellitus [Not Recovered/Not Resolved]
  - Sensory loss [Not Recovered/Not Resolved]
  - Depression [Not Recovered/Not Resolved]
  - Depressed mood [Not Recovered/Not Resolved]
  - Erythema [Not Recovered/Not Resolved]
  - Swelling face [Not Recovered/Not Resolved]
